FAERS Safety Report 16337308 (Version 7)
Quarter: 2020Q2

REPORT INFORMATION
  Report Type: Spontaneous
  Country: US (occurrence: US)
  Receive Date: 20190521
  Receipt Date: 20200428
  Transmission Date: 20200713
  Serious: Yes (Other)
  Sender: FDA-Public Use
  Company Number: US-PFIZER INC-2019212983

PATIENT
  Age: 53 Year
  Sex: Male
  Weight: 131.52 kg

DRUGS (5)
  1. LYRICA [Suspect]
     Active Substance: PREGABALIN
     Dosage: 900 MG, DAILY (2 PILLS IN THE MORNING AND 1 PILL 12 TO 14 HOURS AFTER THE MORNING DOSE)
     Route: 048
  2. LYRICA [Suspect]
     Active Substance: PREGABALIN
     Indication: NERVE INJURY
     Dosage: 100 MG, UNK
     Route: 048
  3. LYRICA [Suspect]
     Active Substance: PREGABALIN
     Dosage: 1300 MG
     Route: 048
  4. LYRICA [Suspect]
     Active Substance: PREGABALIN
     Dosage: 300 MG, THRICE DAILY
     Route: 048
  5. LYRICA [Suspect]
     Active Substance: PREGABALIN
     Dosage: 600 MG, DAILY (2 OF THE PREGABALIN AND HE WON^T TAKE THE NIGHTTIME DOSE)
     Route: 048

REACTIONS (13)
  - Intentional overdose [Unknown]
  - Condition aggravated [Recovered/Resolved]
  - Malaise [Recovered/Resolved]
  - Paraesthesia [Unknown]
  - Drug dependence [Not Recovered/Not Resolved]
  - Upper limb fracture [Unknown]
  - Intentional product misuse [Unknown]
  - Hypoaesthesia [Recovered/Resolved]
  - Depressed mood [Unknown]
  - Prescribed overdose [Unknown]
  - Therapeutic product effect delayed [Unknown]
  - Road traffic accident [Unknown]
  - Neuralgia [Not Recovered/Not Resolved]

NARRATIVE: CASE EVENT DATE: 201905
